FAERS Safety Report 8026263-1 (Version None)
Quarter: 2012Q1

REPORT INFORMATION
  Report Type: 
  Country: None (occurrence: None)
  Receive Date: 20120105
  Receipt Date: 20111128
  Transmission Date: 20120608
  Serious: No
  Sender: FDA-Public Use
  Company Number: US-ABBOTT-11P-163-0878183-00

PATIENT
  Sex: Female

DRUGS (2)
  1. NADOLOL [Concomitant]
     Indication: PRODUCT USED FOR UNKNOWN INDICATION
  2. SYNTHROID [Suspect]
     Indication: HYPOTHYROIDISM
     Dates: start: 20110101

REACTIONS (3)
  - HYPERTENSION [None]
  - PALPITATIONS [None]
  - CHEST PAIN [None]
